FAERS Safety Report 8762771 (Version 2)
Quarter: 2013Q1

REPORT INFORMATION
  Report Type: Report from Study
  Country: CA (occurrence: CA)
  Receive Date: 20120828
  Receipt Date: 20130319
  Transmission Date: 20140127
  Serious: Yes (Hospitalization, Other)
  Sender: FDA-Public Use
  Company Number: CA-JNJFOC-20120812204

PATIENT
  Sex: Male
  Weight: 109.5 kg

DRUGS (3)
  1. REMICADE [Suspect]
     Indication: COLITIS ULCERATIVE
     Route: 042
     Dates: start: 20120712, end: 20120823
  2. REMICADE [Suspect]
     Indication: COLITIS ULCERATIVE
     Route: 042
  3. REMICADE [Suspect]
     Indication: COLITIS ULCERATIVE
     Dosage: 12 INFUSIONS
     Route: 042
     Dates: start: 201101

REACTIONS (5)
  - Arthralgia [Recovering/Resolving]
  - Joint effusion [Unknown]
  - Carpal tunnel syndrome [Unknown]
  - Drug ineffective [Unknown]
  - Nervous system disorder [Recovering/Resolving]
